FAERS Safety Report 7320648-4 (Version None)
Quarter: 2011Q1

REPORT INFORMATION
  Report Type: 
  Country: None (occurrence: None)
  Receive Date: 20110228
  Receipt Date: 20110218
  Transmission Date: 20110831
  Serious: No
  Sender: FDA-Public Use
  Company Number: JP-SANOFI-AVENTIS-2010SA031002

PATIENT
  Age: 55 Year
  Sex: Male

DRUGS (1)
  1. TAXOTERE [Suspect]
     Indication: NON-SMALL CELL LUNG CANCER

REACTIONS (4)
  - PALPITATIONS [None]
  - CHEST PAIN [None]
  - NEUTROPENIA [None]
  - MALAISE [None]
